FAERS Safety Report 4417221-4 (Version None)
Quarter: 2004Q3

REPORT INFORMATION
  Report Type: 
  Country: None (occurrence: None)
  Receive Date: 20040806
  Receipt Date: 20040723
  Transmission Date: 20050211
  Serious: Yes (Other)
  Sender: FDA-Public Use
  Company Number: FR-ROCHE-375432

PATIENT
  Age: 55 Year
  Sex: Male

DRUGS (1)
  1. ROACCUTANE [Suspect]
     Route: 048

REACTIONS (2)
  - BLINDNESS UNILATERAL [None]
  - RETINAL VEIN THROMBOSIS [None]
